FAERS Safety Report 18443228 (Version 5)
Quarter: 2021Q1

REPORT INFORMATION
  Report Type: Report from Study
  Country: US (occurrence: US)
  Receive Date: 20201029
  Receipt Date: 20210116
  Transmission Date: 20210419
  Serious: Yes (Other)
  Sender: FDA-Public Use
  Company Number: US-TAKEDA-2020TUS036648

PATIENT
  Age: 24 Year
  Sex: Female

DRUGS (2)
  1. VEDOLIZUMAB [Suspect]
     Active Substance: VEDOLIZUMAB
     Indication: CROHN^S DISEASE
     Dosage: 300 MILLIGRAM, Q4WEEKS
     Route: 042
     Dates: start: 20200824
  2. VEDOLIZUMAB [Suspect]
     Active Substance: VEDOLIZUMAB
     Dosage: 300 MILLIGRAM, Q4WEEKS
     Route: 042

REACTIONS (14)
  - Haematochezia [Unknown]
  - Frequent bowel movements [Unknown]
  - Decreased appetite [Unknown]
  - Pruritus [Unknown]
  - Pyrexia [Unknown]
  - Off label use [None]
  - Mucous stools [Unknown]
  - Chills [Unknown]
  - Diarrhoea [Unknown]
  - Headache [Unknown]
  - Arthralgia [Unknown]
  - Fatigue [Unknown]
  - Drug ineffective [Unknown]
  - Nausea [Unknown]

NARRATIVE: CASE EVENT DATE: 20200824
